FAERS Safety Report 13553963 (Version 2)
Quarter: 2017Q2

REPORT INFORMATION
  Report Type: Spontaneous
  Country: US (occurrence: US)
  Receive Date: 20170517
  Receipt Date: 20170630
  Transmission Date: 20170830
  Serious: No
  Sender: FDA-Public Use
  Company Number: US-GLAXOSMITHKLINE-US2017GSK070878

PATIENT
  Sex: Male

DRUGS (1)
  1. SUMATRIPTAN (SUMATRIPTAN SUCCINATE) SOLUTION FOR INJECTION IN PRE-FILL [Suspect]
     Active Substance: SUMATRIPTAN
     Indication: MIGRAINE
     Dosage: 6 MG, UNK
     Route: 042

REACTIONS (10)
  - Blood disorder [Unknown]
  - Drug ineffective [Unknown]
  - Headache [Unknown]
  - Accidental underdose [Unknown]
  - Nausea [Unknown]
  - Injection site erythema [Unknown]
  - Needle issue [Unknown]
  - Product quality issue [Unknown]
  - Device leakage [Unknown]
  - Injection site indentation [Unknown]
